FAERS Safety Report 11191376 (Version 1)
Quarter: 2015Q2

REPORT INFORMATION
  Report Type: Spontaneous
  Country: JP (occurrence: JP)
  Receive Date: 20150616
  Receipt Date: 20150616
  Transmission Date: 20150821
  Serious: Yes (Hospitalization, Other)
  Sender: FDA-Public Use
  Company Number: PHJP2015JP009714

PATIENT
  Age: 41 Year
  Sex: Female

DRUGS (1)
  1. DIOVAN [Suspect]
     Active Substance: VALSARTAN
     Indication: HYPERTENSION
     Dosage: 40 MG, QD
     Route: 048
     Dates: start: 200211, end: 20040924

REACTIONS (9)
  - Electrocardiogram T wave inversion [Unknown]
  - Electrocardiogram U-wave abnormality [Unknown]
  - Blood creatine phosphokinase increased [Unknown]
  - Blood aldosterone increased [Unknown]
  - Hypokalaemia [Unknown]
  - Myalgia [Unknown]
  - Adrenal mass [Unknown]
  - Renin decreased [Unknown]
  - Muscular weakness [Unknown]

NARRATIVE: CASE EVENT DATE: 200401
